FAERS Safety Report 7984343-0 (Version None)
Quarter: 2011Q4

REPORT INFORMATION
  Report Type: 
  Country: None (occurrence: None)
  Receive Date: 20111216
  Receipt Date: 20111207
  Transmission Date: 20120403
  Serious: Yes (Hospitalization)
  Sender: FDA-Public Use
  Company Number: NL-JNJFOC-20111204099

PATIENT
  Sex: Female

DRUGS (23)
  1. DOXORUBICIN HCL [Suspect]
     Route: 042
     Dates: start: 20110614
  2. RITUXIMAB [Suspect]
     Route: 042
  3. CYCLOPHOSPHAMIDE [Suspect]
     Indication: DIFFUSE LARGE B-CELL LYMPHOMA
     Route: 042
     Dates: start: 20110404
  4. CYCLOPHOSPHAMIDE [Suspect]
     Route: 042
  5. VINCRISTINE [Suspect]
     Route: 042
     Dates: start: 20110614
  6. RITUXIMAB [Suspect]
     Route: 042
     Dates: start: 20110404
  7. RITUXIMAB [Suspect]
     Indication: DIFFUSE LARGE B-CELL LYMPHOMA
     Route: 042
     Dates: start: 20110614
  8. PREDNISONE TAB [Suspect]
     Route: 048
     Dates: start: 20110404
  9. VINCRISTINE [Suspect]
     Route: 042
     Dates: start: 20110418
  10. DOXORUBICIN HCL [Suspect]
     Route: 042
     Dates: start: 20110404
  11. NEULASTA [Suspect]
     Route: 058
     Dates: start: 20110617
  12. PREDNISONE TAB [Suspect]
     Route: 048
     Dates: start: 20110408
  13. VINCRISTINE [Suspect]
     Indication: DIFFUSE LARGE B-CELL LYMPHOMA
     Route: 042
  14. VINCRISTINE [Suspect]
     Route: 042
     Dates: start: 20110404
  15. PREDNISONE TAB [Suspect]
     Route: 048
     Dates: start: 20110418
  16. PREDNISONE TAB [Suspect]
     Route: 048
  17. NEULASTA [Suspect]
     Indication: DIFFUSE LARGE B-CELL LYMPHOMA
     Route: 058
     Dates: start: 20110407
  18. CYCLOPHOSPHAMIDE [Suspect]
     Route: 042
     Dates: start: 20110418
  19. DOXORUBICIN HCL [Suspect]
     Indication: DIFFUSE LARGE B-CELL LYMPHOMA
     Route: 042
  20. DOXORUBICIN HCL [Suspect]
     Route: 042
     Dates: start: 20110418
  21. RITUXIMAB [Suspect]
     Route: 042
     Dates: start: 20110418
  22. PREDNISONE TAB [Suspect]
     Indication: DIFFUSE LARGE B-CELL LYMPHOMA
     Route: 048
     Dates: start: 20110614
  23. CYCLOPHOSPHAMIDE [Suspect]
     Route: 042
     Dates: start: 20110614

REACTIONS (1)
  - PLEURAL EFFUSION [None]
